FAERS Safety Report 19075722 (Version 1)
Quarter: 2021Q1

REPORT INFORMATION
  Report Type: Report from Study
  Country: FR (occurrence: FR)
  Receive Date: 20210331
  Receipt Date: 20210331
  Transmission Date: 20210420
  Serious: Yes (Death, Other)
  Sender: FDA-Public Use
  Company Number: FR-AUROBINDO-AUR-APL-2021-012416

PATIENT

DRUGS (2)
  1. ETOPOSIDE. [Suspect]
     Active Substance: ETOPOSIDE
     Indication: MEDULLOBLASTOMA
     Dosage: 100 MILLIGRAM/SQ. METER, DAILY ON DAY 15
     Route: 065
  2. CARBOPLATIN. [Suspect]
     Active Substance: CARBOPLATIN
     Indication: MEDULLOBLASTOMA
     Dosage: 160 MILLIGRAM/SQ. METER, DAILY ON DAY 15
     Route: 065

REACTIONS (3)
  - Toxicity to various agents [Fatal]
  - Product use in unapproved indication [Unknown]
  - Haemorrhage [Fatal]
